FAERS Safety Report 7795027-6 (Version None)
Quarter: 2011Q4

REPORT INFORMATION
  Report Type: 
  Country: None (occurrence: None)
  Receive Date: 20111004
  Receipt Date: 20111003
  Transmission Date: 20120403
  Serious: Yes (Death, Other)
  Sender: FDA-Public Use
  Company Number: PHHY2011TR84494

PATIENT
  Sex: Male

DRUGS (1)
  1. SANDOSTATIN LAR [Suspect]
     Indication: ACROMEGALY
     Dosage: 20 MG, UNK
     Route: 065

REACTIONS (5)
  - CARDIAC FAILURE [None]
  - RENAL FAILURE CHRONIC [None]
  - RESPIRATORY FAILURE [None]
  - GASTROENTERITIS [None]
  - HYPOVOLAEMIA [None]
